FAERS Safety Report 4801390-8 (Version None)
Quarter: 2005Q4

REPORT INFORMATION
  Report Type: 
  Country: None (occurrence: None)
  Receive Date: 20051018
  Receipt Date: 20050823
  Transmission Date: 20060501
  Serious: Yes (Disabling)
  Sender: FDA-Public Use
  Company Number: DE-SOLVAY-00305002781

PATIENT
  Age: 586 Month
  Sex: Male
  Weight: 79 kg

DRUGS (3)
  1. THYRONAJOD 125 [Concomitant]
     Indication: SECONDARY HYPERTHYROIDISM
     Dosage: DAILY DOSE: 125 MILLIGRAM(S)
     Route: 065
     Dates: start: 19990201
  2. ANDROTOP GEL [Suspect]
     Indication: OSTEOPOROSIS
     Route: 061
     Dates: start: 20040201, end: 20050201
  3. ANDROTOP GEL [Suspect]
     Dosage: DAILY DOSE: 25 MILLIGRAM(S)
     Route: 061
     Dates: start: 20050201, end: 20050901

REACTIONS (1)
  - PERIOSTITIS [None]
